FAERS Safety Report 10530986 (Version 1)
Quarter: 2014Q4

REPORT INFORMATION
  Report Type: Spontaneous
  Country: GB (occurrence: GB)
  Receive Date: 20141021
  Receipt Date: 20141021
  Transmission Date: 20150528
  Serious: Yes (Death, Other)
  Sender: FDA-Public Use
  Company Number: GB-OTSUKA-EU-2014-10491

PATIENT

DRUGS (4)
  1. RISPERDAL CONSTA [Suspect]
     Active Substance: RISPERIDONE
     Indication: SCHIZOPHRENIA
     Dosage: 50 MG MILLIGRAM(S), ONCE EVERY 2 WEEK
     Route: 030
     Dates: start: 2007
  2. ABILIFY MAINTENA [Suspect]
     Active Substance: ARIPIPRAZOLE
     Indication: PRODUCT USED FOR UNKNOWN INDICATION
     Dosage: UNK UNK, UNKNOWN
     Route: 065
  3. CITALOPRAM [Suspect]
     Active Substance: CITALOPRAM HYDROBROMIDE
     Dosage: 20 MG MILLIGRAM(S), UNKNOWN
     Route: 065
  4. CITALOPRAM [Suspect]
     Active Substance: CITALOPRAM HYDROBROMIDE
     Indication: PRODUCT USED FOR UNKNOWN INDICATION
     Dosage: 10 MG MILLIGRAM(S), UNKNOWN
     Route: 065

REACTIONS (6)
  - Metabolic disorder [Fatal]
  - Myocardial ischaemia [Fatal]
  - Dysstasia [Unknown]
  - Ketoacidosis [Fatal]
  - Faecal incontinence [Unknown]
  - Parkinsonism [Unknown]

NARRATIVE: CASE EVENT DATE: 20140404
